FAERS Safety Report 9851415 (Version 2)
Quarter: 2014Q1

REPORT INFORMATION
  Report Type: Spontaneous
  Country: AU (occurrence: AU)
  Receive Date: 20140129
  Receipt Date: 20140226
  Transmission Date: 20141002
  Serious: Yes (Hospitalization)
  Sender: FDA-Public Use
  Company Number: AU-ROCHE-1337894

PATIENT
  Age: 59 Year
  Sex: Male
  Weight: 69 kg

DRUGS (7)
  1. PEGASYS [Suspect]
     Indication: ANTIVIRAL TREATMENT
     Route: 065
     Dates: start: 20130806, end: 20140115
  2. RIBAVIRIN [Suspect]
     Indication: ANTIVIRAL TREATMENT
     Route: 048
     Dates: start: 20130806, end: 20140115
  3. VENTOLIN [Concomitant]
     Indication: ASTHMA
  4. ATROVENT [Concomitant]
     Indication: ASTHMA
  5. FLUOXETINE [Concomitant]
     Route: 048
  6. PANTOPRAZOLE [Concomitant]
     Route: 048
  7. POLARAMINE [Concomitant]
     Route: 048

REACTIONS (9)
  - Neutropenia [Unknown]
  - Pancytopenia [Unknown]
  - Delirium [Unknown]
  - Paranoia [Unknown]
  - Confusional state [Unknown]
  - Hypokalaemia [Recovered/Resolved]
  - Hyperphosphataemia [Unknown]
  - Hypomagnesaemia [Recovered/Resolved]
  - Ascites [Unknown]
